FAERS Safety Report 9820279 (Version 1)
Quarter: 2014Q1

REPORT INFORMATION
  Report Type: Spontaneous
  Country: BR (occurrence: BR)
  Receive Date: 20140116
  Receipt Date: 20140116
  Transmission Date: 20141002
  Serious: Yes (Other)
  Sender: FDA-Public Use
  Company Number: BR-SA-2014SA002977

PATIENT
  Sex: Male
  Weight: 90 kg

DRUGS (9)
  1. LANTUS [Suspect]
     Indication: TYPE 2 DIABETES MELLITUS
     Dosage: DOSE:18 UNIT(S)
     Route: 058
     Dates: start: 2013
  2. CLIKSTAR [Concomitant]
     Indication: DEVICE THERAPY
     Dates: start: 2013
  3. CLINFAR [Concomitant]
     Route: 048
  4. MONOCORDIL [Concomitant]
     Route: 048
  5. MICARDIS HCT [Concomitant]
     Route: 048
  6. SOMALGIN CARDIO [Concomitant]
     Route: 048
  7. SELOZOK [Concomitant]
     Route: 048
  8. DIAMICRON MR [Concomitant]
     Route: 048
  9. TRAYENTA [Concomitant]
     Indication: TYPE 2 DIABETES MELLITUS
     Route: 048

REACTIONS (2)
  - Macular degeneration [Recovering/Resolving]
  - Visual acuity reduced [Recovering/Resolving]
